FAERS Safety Report 18035473 (Version 1)
Quarter: 2020Q3

REPORT INFORMATION
  Report Type: Spontaneous
  Country: US (occurrence: US)
  Receive Date: 20200716
  Receipt Date: 20200716
  Transmission Date: 20201103
  Serious: Yes (Death, Life-Threatening, Hospitalization, Other)
  Sender: FDA-Public Use
  Company Number: None

PATIENT
  Age: 41 Year
  Sex: Female
  Weight: 68 kg

DRUGS (2)
  1. SMART CARE HAND SANITIZER [Suspect]
     Active Substance: ALCOHOL
  2. SMART CARE HAND SANITIZER [Suspect]
     Active Substance: ALCOHOL

REACTIONS (5)
  - Depressed level of consciousness [None]
  - Exposure via ingestion [None]
  - Hypotension [None]
  - Intentional product misuse [None]
  - Metabolic acidosis [None]

NARRATIVE: CASE EVENT DATE: 20200703
